FAERS Safety Report 22949113 (Version 3)
Quarter: 2023Q4

REPORT INFORMATION
  Report Type: Report from Study
  Country: US (occurrence: US)
  Receive Date: 20230915
  Receipt Date: 20231009
  Transmission Date: 20240109
  Serious: No
  Sender: FDA-Public Use
  Company Number: US-AMGEN-USASP2023164284

PATIENT
  Age: 68 Year
  Sex: Female

DRUGS (1)
  1. REPATHA [Suspect]
     Active Substance: EVOLOCUMAB
     Indication: Hypercholesterolaemia
     Dosage: 140 MILLIGRAM, Q2WK
     Route: 065
     Dates: start: 202307

REACTIONS (6)
  - Blood glucose increased [Unknown]
  - Fatigue [Recovered/Resolved]
  - Illness anxiety disorder [Unknown]
  - Blood cholesterol increased [Unknown]
  - Low density lipoprotein abnormal [Unknown]
  - Vertigo positional [Unknown]

NARRATIVE: CASE EVENT DATE: 20230101
